FAERS Safety Report 10194193 (Version 1)
Quarter: 2014Q2

REPORT INFORMATION
  Report Type: Spontaneous
  Country: US (occurrence: US)
  Receive Date: 20140524
  Receipt Date: 20140524
  Transmission Date: 20141212
  Serious: No
  Sender: FDA-Public Use
  Company Number: US-SANOFI-AVENTIS-2013SA069333

PATIENT
  Age: 25 Year
  Sex: Male

DRUGS (3)
  1. LANTUS SOLOSTAR [Suspect]
     Indication: TYPE 1 DIABETES MELLITUS
     Dosage: TAKEN FROM:8-9 YEARS DOSE:40 UNIT(S)
     Route: 051
  2. SOLOSTAR [Concomitant]
     Indication: TYPE 1 DIABETES MELLITUS
     Dosage: TAKEN FROM:8-9 YEARS
  3. HUMALOG [Concomitant]

REACTIONS (2)
  - Diabetic ketoacidosis [Unknown]
  - Blood glucose increased [Unknown]
